FAERS Safety Report 4628436-4 (Version None)
Quarter: 2005Q2

REPORT INFORMATION
  Report Type: 
  Country: None (occurrence: None)
  Receive Date: 20050404
  Receipt Date: 20050323
  Transmission Date: 20051028
  Serious: Yes (Hospitalization, Other)
  Sender: FDA-Public Use
  Company Number: HQWYE907110NOV03

PATIENT
  Age: 52 Year
  Sex: Female

DRUGS (3)
  1. PREMPRO [Suspect]
     Indication: HORMONE REPLACEMENT THERAPY
     Dosage: 1 TABLET DAILY; ORAL
     Route: 048
     Dates: start: 19960101, end: 20010504
  2. PREMARIN [Suspect]
     Indication: OESTROGEN REPLACEMENT THERAPY
     Dosage: DAILY, ORAL
     Route: 048
     Dates: start: 20010505, end: 20011112
  3. GLUCOVANCE [Concomitant]

REACTIONS (19)
  - ABDOMINAL PAIN UPPER [None]
  - ADRENAL ADENOMA [None]
  - ALANINE AMINOTRANSFERASE INCREASED [None]
  - ASPARTATE AMINOTRANSFERASE INCREASED [None]
  - BLOOD GLUCOSE INCREASED [None]
  - BREAST CANCER FEMALE [None]
  - BREAST PAIN [None]
  - CHOLECYSTITIS [None]
  - CHOLELITHIASIS [None]
  - CONSTIPATION [None]
  - EYE DISORDER [None]
  - FAECALOMA [None]
  - HAEMATOMA [None]
  - HEPATIC STEATOSIS [None]
  - INTESTINAL MASS [None]
  - OVARIAN CYST [None]
  - OVARIAN NEOPLASM [None]
  - PELVIC PAIN [None]
  - UTERINE LEIOMYOMA [None]
